FAERS Safety Report 15776560 (Version 1)
Quarter: 2018Q4

REPORT INFORMATION
  Report Type: Report from Study
  Country: IT (occurrence: IT)
  Receive Date: 20181231
  Receipt Date: 20181231
  Transmission Date: 20190205
  Serious: Yes (Other)
  Sender: FDA-Public Use
  Company Number: IT-PFIZER INC-2018530840

PATIENT
  Sex: Female

DRUGS (4)
  1. LEUCOVORIN CALCIUM. [Suspect]
     Active Substance: LEUCOVORIN CALCIUM
     Indication: OVARIAN CANCER
     Dosage: 200 MG/M2, EVERY 3 WEEKS, (2-H INFUSION ON DAY 1)
  2. OXALIPLATIN. [Suspect]
     Active Substance: OXALIPLATIN
     Indication: OVARIAN CANCER
     Dosage: 85 MG/M2, EVERY 3 WEEKS, (2-H INFUSION ON DAY 1)
  3. 5-FLUOROURACIL [FLUOROURACIL] [Suspect]
     Active Substance: FLUOROURACIL
     Dosage: 600 MG/M2, EVERY 3 WEEKS, (22-H INFUSION, FOR TWO CONSECUTIVE DAYS)
  4. 5-FLUOROURACIL [FLUOROURACIL] [Suspect]
     Active Substance: FLUOROURACIL
     Indication: OVARIAN CANCER
     Dosage: 400 MG/M2, EVERY 3 WEEKS, (ON DAY 1)
     Route: 040

REACTIONS (1)
  - Neurotoxicity [Unknown]
